FAERS Safety Report 13975909 (Version 5)
Quarter: 2019Q1

REPORT INFORMATION
  Report Type: Report from Study
  Country: TR (occurrence: TR)
  Receive Date: 20170915
  Receipt Date: 20190322
  Transmission Date: 20190417
  Serious: Yes (Death, Life-Threatening, Hospitalization)
  Sender: FDA-Public Use
  Company Number: TR-ASTRAZENECA-2017SE92581

PATIENT
  Age: 20566 Day
  Sex: Male

DRUGS (7)
  1. DEXAMETHASONE. [Concomitant]
     Active Substance: DEXAMETHASONE
     Indication: BACK PAIN
     Route: 048
     Dates: start: 20170906, end: 20170908
  2. CIPRALEX [Concomitant]
     Active Substance: ESCITALOPRAM OXALATE
     Indication: DEPRESSION
     Dosage: 10.0MG AS REQUIRED
     Route: 048
     Dates: end: 20170908
  3. OLAPARIB. [Suspect]
     Active Substance: OLAPARIB
     Indication: PROSTATE CANCER METASTATIC
     Route: 048
     Dates: start: 20170906, end: 20170908
  4. DEXAMETHASONE. [Concomitant]
     Active Substance: DEXAMETHASONE
     Indication: BACK PAIN
     Route: 048
     Dates: start: 20170822, end: 20170905
  5. DEXAMETHASONE. [Concomitant]
     Active Substance: DEXAMETHASONE
     Indication: BACK PAIN
     Route: 048
     Dates: start: 20170727, end: 20170821
  6. ZOLADEX [Concomitant]
     Active Substance: GOSERELIN ACETATE
     Indication: BILATERAL ORCHIDECTOMY
     Route: 058
     Dates: end: 20170914
  7. CONTRAMAL REGARD [Concomitant]
     Indication: SPINAL PAIN
     Route: 048
     Dates: start: 20170812, end: 20170906

REACTIONS (3)
  - Neutropenia [Fatal]
  - Thrombocytopenia [Not Recovered/Not Resolved]
  - Lung infection [Fatal]

NARRATIVE: CASE EVENT DATE: 20170908
